FAERS Safety Report 9652502 (Version 2)
Quarter: 2013Q4

REPORT INFORMATION
  Report Type: Report from Study
  Country: US (occurrence: US)
  Receive Date: 20131029
  Receipt Date: 20131105
  Transmission Date: 20140711
  Serious: Yes (Hospitalization)
  Sender: FDA-Public Use
  Company Number: US-ACTELION-A-US2013-90091

PATIENT
  Age: 57 Year
  Sex: Female

DRUGS (3)
  1. VELETRI [Suspect]
     Indication: PULMONARY ARTERIAL HYPERTENSION
     Dosage: 141 NG/KG, PER MIN
     Route: 042
     Dates: start: 20121103
  2. LETAIRIS [Concomitant]
  3. SILDENAFIL [Concomitant]

REACTIONS (2)
  - Pneumonia [Unknown]
  - Dyspnoea [Unknown]
